FAERS Safety Report 17137169 (Version 1)
Quarter: 2019Q4

REPORT INFORMATION
  Report Type: Spontaneous
  Country: JP (occurrence: JP)
  Receive Date: 20191210
  Receipt Date: 20191210
  Transmission Date: 20200122
  Serious: Yes (Death, Hospitalization, Other)
  Sender: FDA-Public Use
  Company Number: JP-ALLERGAN-1950414US

PATIENT
  Sex: Male

DRUGS (3)
  1. BOTOX [Suspect]
     Active Substance: ONABOTULINUMTOXINA
     Dosage: 50 IU, SINGLE
     Route: 030
     Dates: start: 20160531, end: 20160531
  2. DANTRIUM [Concomitant]
     Active Substance: DANTROLENE SODIUM
     Indication: HYPERTONIA
     Dosage: UNK
  3. BOTOX [Suspect]
     Active Substance: ONABOTULINUMTOXINA
     Indication: MUSCLE SPASTICITY
     Dosage: 35 IU, SINGLE
     Route: 030
     Dates: start: 20191007, end: 20191007

REACTIONS (6)
  - Product use issue [Unknown]
  - Chronic respiratory failure [Unknown]
  - Death [Fatal]
  - Respiratory depression [Unknown]
  - Hypertonia [Unknown]
  - Disease progression [Unknown]

NARRATIVE: CASE EVENT DATE: 20191107
